FAERS Safety Report 8627823 (Version 3)
Quarter: 2012Q4

REPORT INFORMATION
  Report Type: 
  Country: FR (occurrence: FR)
  Receive Date: 20120621
  Receipt Date: 20121008
  Transmission Date: 20130627
  Serious: Yes (Life-Threatening, Hospitalization, Other)
  Sender: FDA-Public Use
  Company Number: FR-PFIZER INC-2012146161

PATIENT
  Age: 81 Year
  Sex: Female
  Weight: 58 kg

DRUGS (4)
  1. SUTENT [Suspect]
     Indication: PANCREATIC NEUROENDOCRINE TUMOUR
     Dosage: 37.5 mg 1x/day, 4 weeks followed by 15 days off
     Route: 048
     Dates: start: 201106, end: 20120530
  2. ALDACTONE [Concomitant]
     Dosage: 25, 1 DF, 1x/day
     Route: 048
     Dates: start: 2010
  3. TEMERIT [Concomitant]
     Indication: HYPERTENSION
     Dosage: 5, 1 DF, 1x/day
     Route: 048
     Dates: start: 2010
  4. ALDOSTERONE [Concomitant]
     Dosage: 25 mg, 1x/day

REACTIONS (1)
  - Hypoglycaemic coma [Recovered/Resolved]
